FAERS Safety Report 7246409-2 (Version None)
Quarter: 2011Q1

REPORT INFORMATION
  Report Type: 
  Country: None (occurrence: None)
  Receive Date: 20110126
  Receipt Date: 20100719
  Transmission Date: 20110831
  Serious: No
  Sender: FDA-Public Use
  Company Number: US-BAUSCH-2010BL003914

PATIENT
  Age: 10 Year
  Sex: Female

DRUGS (2)
  1. ZYRTEC [Concomitant]
     Indication: SEASONAL ALLERGY
     Route: 048
  2. ZYLET [Suspect]
     Indication: CONJUNCTIVITIS ALLERGIC
     Route: 047
     Dates: start: 20100609, end: 20100615

REACTIONS (1)
  - DRUG INEFFECTIVE [None]
